FAERS Safety Report 17432741 (Version 1)
Quarter: 2020Q1

REPORT INFORMATION
  Report Type: Report from Study
  Country: None (occurrence: BR)
  Receive Date: 20200218
  Receipt Date: 20200218
  Transmission Date: 20200409
  Serious: Yes (Other)
  Sender: FDA-Public Use
  Company Number: BR-ABBVIE-19K-020-3203159-00

PATIENT
  Sex: Male
  Weight: 102 kg

DRUGS (1)
  1. HUMIRA [Suspect]
     Active Substance: ADALIMUMAB
     Indication: ANKYLOSING SPONDYLITIS
     Route: 058
     Dates: start: 20180821, end: 20191113

REACTIONS (5)
  - Osteoarthritis [Unknown]
  - Body height decreased [Unknown]
  - Pain [Unknown]
  - Ankylosing spondylitis [Unknown]
  - Arthralgia [Unknown]
